FAERS Safety Report 16343875 (Version 1)
Quarter: 2019Q2

REPORT INFORMATION
  Report Type: Spontaneous
  Country: IT (occurrence: IT)
  Receive Date: 20190522
  Receipt Date: 20190522
  Transmission Date: 20190711
  Serious: Yes (Other)
  Sender: FDA-Public Use
  Company Number: IT-PFIZER INC-2019215529

PATIENT
  Age: 69 Year
  Sex: Female

DRUGS (4)
  1. TAVANIC [Suspect]
     Active Substance: LEVOFLOXACIN
     Indication: INFECTION
     Dosage: 1 DF, 1X/DAY
     Route: 048
     Dates: start: 20181108, end: 20181113
  2. CEFAZOLIN [Suspect]
     Active Substance: CEFAZOLIN
     Indication: INFECTION
     Dosage: 1 G, 1X/DAY
     Route: 030
     Dates: start: 20181109, end: 20181113
  3. CLEXANE [Suspect]
     Active Substance: ENOXAPARIN SODIUM
     Indication: THROMBOSIS PROPHYLAXIS
     Dosage: 4000 KIU, 1X/DAY
     Route: 058
     Dates: start: 20181109, end: 20181113
  4. ANTRA [OMEPRAZOLE] [Suspect]
     Active Substance: OMEPRAZOLE
     Indication: GASTRIC ULCER
     Dosage: 20 MG, 1X/DAY
     Route: 048
     Dates: start: 20181109, end: 20181113

REACTIONS (2)
  - Flushing [Recovering/Resolving]
  - Erythema [Recovering/Resolving]

NARRATIVE: CASE EVENT DATE: 20181113
